FAERS Safety Report 6323428-1 (Version None)
Quarter: 2009Q3

REPORT INFORMATION
  Report Type: 
  Country: None (occurrence: None)
  Receive Date: 20090818
  Receipt Date: 20090311
  Transmission Date: 20100115
  Serious: Yes (Hospitalization)
  Sender: FDA-Public Use
  Company Number: MEDI-0008062

PATIENT
  Age: 4 Year
  Sex: Female

DRUGS (14)
  1. SYNAGIS [Suspect]
     Dates: start: 20081023, end: 20090226
  2. PREVACID [Concomitant]
  3. REGLAN [Concomitant]
  4. CALCIUM CARRONATE (CALCIUM CARBONATE) [Concomitant]
  5. POTASSIUM CHLORIDE (POTASSTUM CHLORIDE) [Concomitant]
  6. KEPPRA [Concomitant]
  7. DIURIL(CHLOROTHIAZIDE) [Concomitant]
  8. MIRALAX [Concomitant]
  9. PULMICORT [Concomitant]
  10. XOPENEX (LEVOSALB`UTAMOL) [Concomitant]
  11. BACLOFEN [Concomitant]
  12. KLONOPIN [Concomitant]
  13. FURADANTIN [Concomitant]
  14. POLY-VI-SOL (ERGOCALCIFEROL, ASCORBIC ACID, THIAMINE, RETINOL, RIBOFLA [Concomitant]

REACTIONS (1)
  - RESPIRATORY SYNCYTIAL VIRUS INFECTION [None]
